FAERS Safety Report 25065602 (Version 1)
Quarter: 2025Q1

REPORT INFORMATION
  Report Type: Spontaneous
  Country: US (occurrence: US)
  Receive Date: 20250311
  Receipt Date: 20250311
  Transmission Date: 20250409
  Serious: No
  Sender: BAUSCH AND LOMB
  Company Number: US-BAUSCH-BL-2025-003032

PATIENT
  Sex: Male

DRUGS (2)
  1. IPRATROPIUM BROMIDE [Suspect]
     Active Substance: IPRATROPIUM BROMIDE
     Indication: Upper-airway cough syndrome
     Route: 045
     Dates: end: 20250227
  2. TADALAFIL [Concomitant]
     Active Substance: TADALAFIL
     Indication: Product used for unknown indication

REACTIONS (5)
  - Oropharyngeal discomfort [Recovering/Resolving]
  - Burning sensation [Recovering/Resolving]
  - Product after taste [Unknown]
  - Product odour abnormal [Unknown]
  - Product prescribing issue [Unknown]
